FAERS Safety Report 5845212-5 (Version None)
Quarter: 2008Q3

REPORT INFORMATION
  Report Type: 
  Country: None (occurrence: None)
  Receive Date: 20080814
  Receipt Date: 20080808
  Transmission Date: 20090109
  Serious: Yes (Death)
  Sender: FDA-Public Use
  Company Number: A0737972A

PATIENT
  Age: 60 Year
  Sex: Female

DRUGS (2)
  1. HYCAMTIN [Suspect]
     Indication: METASTATIC UTERINE CANCER
     Dosage: 5.9MG CYCLIC
     Route: 042
     Dates: start: 20070906, end: 20071031
  2. NO CONCURRENT MEDICATION [Concomitant]

REACTIONS (2)
  - DISEASE PROGRESSION [None]
  - DRUG INEFFECTIVE [None]
